FAERS Safety Report 10145592 (Version 1)
Quarter: 2014Q2

REPORT INFORMATION
  Report Type: Spontaneous
  Country: DK (occurrence: DK)
  Receive Date: 20140501
  Receipt Date: 20140501
  Transmission Date: 20141212
  Serious: Yes (Disabling)
  Sender: FDA-Public Use
  Company Number: DK-AMGEN INC.-DNKSP2014031240

PATIENT
  Age: 8 Year
  Sex: Male

DRUGS (2)
  1. ENBREL [Suspect]
     Indication: JUVENILE IDIOPATHIC ARTHRITIS
     Dosage: 25 MG, UNK
     Route: 058
     Dates: start: 20130927
  2. PREDNISOLON                        /00016201/ [Suspect]
     Indication: JUVENILE IDIOPATHIC ARTHRITIS
     Dosage: 25MG, 1X/DAY
     Route: 048
     Dates: start: 20130927, end: 20130929

REACTIONS (1)
  - Psychotic disorder [Not Recovered/Not Resolved]
